FAERS Safety Report 8028734-0 (Version None)
Quarter: 2012Q1

REPORT INFORMATION
  Report Type: 
  Country: None (occurrence: None)
  Receive Date: 20120106
  Receipt Date: 20111228
  Transmission Date: 20120608
  Serious: Yes (Hospitalization)
  Sender: FDA-Public Use
  Company Number: US-MERCK-1107USA02913

PATIENT
  Age: 66 Year
  Sex: Female
  Weight: 51 kg

DRUGS (7)
  1. FOSAMAX [Suspect]
     Indication: OSTEOPOROSIS
     Route: 048
     Dates: start: 19980701, end: 20020101
  2. ALENDRONATE SODIUM [Suspect]
     Indication: OSTEOPOROSIS
     Route: 048
     Dates: start: 20080614, end: 20110617
  3. FOSAMAX [Suspect]
     Route: 048
     Dates: start: 20020101, end: 20110101
  4. FOSAMAX [Suspect]
     Indication: OSTEOPENIA
     Route: 048
     Dates: start: 19980701, end: 20020101
  5. PREMARIN [Concomitant]
     Indication: OSTEOPOROSIS
     Route: 048
     Dates: start: 19980701
  6. FOSAMAX [Suspect]
     Route: 048
     Dates: start: 20020101, end: 20110101
  7. ALENDRONATE SODIUM [Suspect]
     Indication: OSTEOPENIA
     Route: 048
     Dates: start: 20080614, end: 20110617

REACTIONS (37)
  - FEMUR FRACTURE [None]
  - ANAEMIA [None]
  - CORONARY ARTERY DISEASE [None]
  - DEHYDRATION [None]
  - ANXIETY [None]
  - MUSCULOSKELETAL DISCOMFORT [None]
  - HYPERSENSITIVITY [None]
  - STRESS FRACTURE [None]
  - HIP FRACTURE [None]
  - DEPRESSION [None]
  - DIARRHOEA [None]
  - DRUG HYPERSENSITIVITY [None]
  - EAR PAIN [None]
  - LUMBAR RADICULOPATHY [None]
  - RESPIRATORY TRACT INFECTION [None]
  - HYPONATRAEMIA [None]
  - FALL [None]
  - ARTHRALGIA [None]
  - HYPOACUSIS [None]
  - MALAISE [None]
  - DRUG INTOLERANCE [None]
  - INTRACRANIAL ANEURYSM [None]
  - ATRIAL FIBRILLATION [None]
  - CHRONIC OBSTRUCTIVE PULMONARY DISEASE [None]
  - EYE DISORDER [None]
  - DYSPNOEA [None]
  - HYPERTENSION [None]
  - CERUMEN IMPACTION [None]
  - VITAMIN D DEFICIENCY [None]
  - TREATMENT NONCOMPLIANCE [None]
  - PAIN IN EXTREMITY [None]
  - BRONCHITIS [None]
  - PRESYNCOPE [None]
  - MYOCARDIAL INFARCTION [None]
  - SKELETAL INJURY [None]
  - HYPOKALAEMIA [None]
  - HYPERGLYCAEMIA [None]
